FAERS Safety Report 8594810-7 (Version None)
Quarter: 2012Q3

REPORT INFORMATION
  Report Type: 
  Country: None (occurrence: None)
  Receive Date: 20120815
  Receipt Date: 20120807
  Transmission Date: 20120928
  Serious: Yes (Hospitalization, Other)
  Sender: FDA-Public Use
  Company Number: US-BAYER-2012-037930

PATIENT
  Age: 30 Year
  Sex: Female
  Weight: 94.785 kg

DRUGS (18)
  1. HYDROCHLOROTHIAZIDE [Concomitant]
     Dosage: 25 MG, TABLET Q DAY
     Dates: start: 20060101, end: 20100101
  2. WOMEN'S MULTI [Concomitant]
     Dosage: UNK
  3. OMEPRAZOLE [Concomitant]
     Dosage: 20 MG, ENTERIC COATED TABLET Q DAY
     Dates: end: 20101014
  4. WOMEN'S MULTI [Concomitant]
     Dosage: UNK
  5. ANTACIDS [Concomitant]
  6. YAZ [Suspect]
     Dosage: UNK
     Route: 048
     Dates: start: 20080101, end: 20090101
  7. ASPIRIN [Concomitant]
     Dosage: 81 MG, TABLET Q DAY
     Dates: start: 20101014
  8. ALLEGRA [Concomitant]
     Dosage: UNK
     Dates: start: 20070101
  9. PROTONIX [Concomitant]
     Dosage: 40 MG, 1 Q AM
     Route: 048
     Dates: start: 20101014
  10. WOMEN'S MULTI [Concomitant]
     Dosage: 1 CAPSULE, EVERY DAY
     Route: 048
     Dates: start: 20100930
  11. PROTONIX [Concomitant]
     Dosage: 40 MG, TABLET, DELAYED RELEASE, 1, EVERY DAY
     Route: 048
     Dates: start: 20101115
  12. FEXOFENADINE HCL [Concomitant]
     Dosage: 60 MG, 1 TABLET BID
     Route: 048
     Dates: start: 20100930
  13. TENEX [Concomitant]
     Dosage: 1 MG TABLET, 1 HS
     Route: 048
     Dates: start: 20100930
  14. BIOTIN [Concomitant]
     Dosage: Q DAY
     Dates: start: 20101014
  15. DONNATAL [Concomitant]
     Indication: ABDOMINAL PAIN
     Dosage: 1 TID PRN
     Route: 048
     Dates: start: 20101014
  16. CLARITIN [Concomitant]
     Dosage: 10 MG, TABLET, 1, EVERY DAY, PRN
     Route: 048
     Dates: start: 20101014
  17. BIOTIN [Concomitant]
     Dosage: 1000 MG, 2 DAILY
     Dates: start: 20100930
  18. BIOTIN [Concomitant]
     Dosage: 1 MG, TABLET, 1 EVERYDAY
     Route: 048
     Dates: start: 20101115

REACTIONS (7)
  - INJURY [None]
  - GALLBLADDER INJURY [None]
  - ANXIETY [None]
  - GENERAL PHYSICAL HEALTH DETERIORATION [None]
  - PAIN [None]
  - CHOLECYSTITIS CHRONIC [None]
  - EMOTIONAL DISTRESS [None]
